FAERS Safety Report 4428300-X (Version None)
Quarter: 2004Q3

REPORT INFORMATION
  Report Type: 
  Country: None (occurrence: None)
  Receive Date: 20040813
  Receipt Date: 20040804
  Transmission Date: 20050211
  Serious: Yes (Hospitalization)
  Sender: FDA-Public Use
  Company Number: 2004-08-0133

PATIENT
  Age: 44 Year
  Sex: Male
  Weight: 80 kg

DRUGS (3)
  1. REBETOL [Suspect]
     Indication: HEPATITIS C
     Dosage: 1 G QD ORAL
     Route: 048
     Dates: start: 20031115
  2. PEGASYS [Suspect]
     Indication: HEPATITIS C
     Dosage: 180-90 MCG QW SUBCUTANEO
     Route: 058
     Dates: start: 20031115
  3. DAONIL TABLETS [Concomitant]

REACTIONS (14)
  - ABDOMINAL DISTENSION [None]
  - ASTHENIA [None]
  - BLOOD GLUCOSE INCREASED [None]
  - CHOLESTASIS [None]
  - DRY SKIN [None]
  - ECZEMA [None]
  - FATIGUE [None]
  - HAEMATOCHEZIA [None]
  - HAEMORRHOIDS [None]
  - INSOMNIA [None]
  - IRRITABILITY [None]
  - LIVER DISORDER [None]
  - MYALGIA [None]
  - RASH [None]
